FAERS Safety Report 9657984 (Version 3)
Quarter: 2013Q4

REPORT INFORMATION
  Report Type: Spontaneous
  Country: FR (occurrence: FR)
  Receive Date: 20131030
  Receipt Date: 20131106
  Transmission Date: 20140711
  Serious: Yes (Hospitalization, Other)
  Sender: FDA-Public Use
  Company Number: FR-PFIZER INC-2013266475

PATIENT
  Age: 44 Year
  Sex: Male

DRUGS (1)
  1. INLYTA [Suspect]
     Indication: CLEAR CELL RENAL CELL CARCINOMA
     Dosage: 5 MG, 2X/DAY
     Dates: start: 201301

REACTIONS (3)
  - Duodenal ulcer perforation [Recovered/Resolved]
  - Disease progression [Unknown]
  - Clear cell renal cell carcinoma [Unknown]
